FAERS Safety Report 5762958-8 (Version None)
Quarter: 2008Q2

REPORT INFORMATION
  Report Type: 
  Country: None (occurrence: None)
  Receive Date: 20080609
  Receipt Date: 20080527
  Transmission Date: 20081010
  Serious: Yes (Other)
  Sender: FDA-Public Use
  Company Number: CO-ROCHE-567040

PATIENT
  Sex: Female
  Weight: 63 kg

DRUGS (4)
  1. PEG-INTERFERON A-2A (RO 25-8310) [Suspect]
     Indication: HEPATITIS C
     Dosage: FORM: SYRINGE
     Route: 058
     Dates: start: 20080112, end: 20080216
  2. RIBAVIRIN [Concomitant]
     Indication: HEPATITIS C
     Route: 048
     Dates: start: 20080112, end: 20080223
  3. FLUOXETINE HCL [Concomitant]
     Indication: DEPRESSION
     Route: 048
     Dates: start: 20080201, end: 20080301
  4. LEVOTHYROXINE SODIUM [Concomitant]
     Indication: HYPOTHYROIDISM
     Route: 048
     Dates: start: 20070101

REACTIONS (5)
  - CEREBRAL ISCHAEMIA [None]
  - DEPRESSION [None]
  - HEADACHE [None]
  - TREMOR [None]
  - WEIGHT DECREASED [None]
